FAERS Safety Report 21004167 (Version 2)
Quarter: 2022Q3

REPORT INFORMATION
  Report Type: Report from Study
  Country: MX (occurrence: None)
  Receive Date: 20220624
  Receipt Date: 20220718
  Transmission Date: 20221027
  Serious: Yes (Death)
  Sender: FDA-Public Use
  Company Number: MX-ROCHE-3123914

PATIENT
  Age: 63 Year
  Sex: Female
  Weight: 75.9 kg

DRUGS (24)
  1. TIRAGOLUMAB [Suspect]
     Active Substance: TIRAGOLUMAB
     Indication: Non-small cell lung cancer metastatic
     Dosage: ON 28-OCT-2021, HE RECEIVED MOST RECENT DOSE OF STUDY DRUG PRIOR TO AE.?ON 01/MAR/2022, HE RECEIVED
     Route: 042
     Dates: start: 20210713
  2. ATEZOLIZUMAB [Suspect]
     Active Substance: ATEZOLIZUMAB
     Indication: Non-small cell lung cancer metastatic
     Dosage: ON 28/OCT/2021, HE RECEIVED MOST RECENT DOSE OF ATEZOLIZUMAB AT 1200 MG PRIOR TO AE.?ON 01/MAR/2022,
     Route: 041
     Dates: start: 20210713
  3. LOSARTAN [Concomitant]
     Active Substance: LOSARTAN
     Indication: Hypertension
     Route: 048
     Dates: start: 201601
  4. METFORMIN [Concomitant]
     Active Substance: METFORMIN HYDROCHLORIDE
     Indication: Type 2 diabetes mellitus
     Route: 048
     Dates: start: 201601, end: 20220209
  5. METFORMIN [Concomitant]
     Active Substance: METFORMIN HYDROCHLORIDE
     Route: 048
     Dates: start: 20220210
  6. SALMETEROL [Concomitant]
     Active Substance: SALMETEROL
     Indication: Prophylaxis
     Route: 048
     Dates: start: 20210802, end: 20211118
  7. FLUTICASONE PROPIONATE [Concomitant]
     Active Substance: FLUTICASONE PROPIONATE
     Indication: Prophylaxis
     Route: 048
     Dates: start: 20210802, end: 20211118
  8. DAPAGLIFLOZIN [Concomitant]
     Active Substance: DAPAGLIFLOZIN
     Indication: Type 2 diabetes mellitus
     Route: 048
     Dates: start: 20220210
  9. ACETYLCYSTEINE [Concomitant]
     Active Substance: ACETYLCYSTEINE
     Indication: Prophylaxis
     Route: 048
     Dates: start: 20211104, end: 20211204
  10. ACETYLCYSTEINE [Concomitant]
     Active Substance: ACETYLCYSTEINE
     Dates: start: 20220228
  11. TIOTROPIUM BROMIDE [Concomitant]
     Active Substance: TIOTROPIUM BROMIDE
     Indication: Prophylaxis
     Route: 048
     Dates: start: 20211119, end: 20220228
  12. ACETAMINOPHEN [Concomitant]
     Active Substance: ACETAMINOPHEN
     Indication: Hyperaemia
     Route: 048
     Dates: start: 20211220, end: 20211230
  13. ACETAMINOPHEN [Concomitant]
     Active Substance: ACETAMINOPHEN
     Indication: Pain
     Route: 048
     Dates: start: 20220323
  14. LEVOFLOXACIN [Concomitant]
     Active Substance: LEVOFLOXACIN
     Indication: Hyperaemia
     Route: 048
     Dates: start: 20211220, end: 20211230
  15. LEVOFLOXACIN [Concomitant]
     Active Substance: LEVOFLOXACIN
     Indication: Productive cough
     Route: 048
     Dates: start: 20220323
  16. SALMETEROL [Concomitant]
     Active Substance: SALMETEROL
     Dates: start: 20220228
  17. FLUTICASONE PROPIONATE [Concomitant]
     Active Substance: FLUTICASONE PROPIONATE
     Dates: start: 20220228
  18. BISOPROLOL [Concomitant]
     Active Substance: BISOPROLOL
     Indication: Tachycardia
     Dates: start: 20220228
  19. FEXOFENADINE [Concomitant]
     Active Substance: FEXOFENADINE HYDROCHLORIDE
     Indication: Eczema
     Dates: start: 20220222, end: 20220321
  20. ALBUTEROL [Concomitant]
     Active Substance: ALBUTEROL
     Dates: start: 20220228
  21. IPRATROPIUM BROMIDE [Concomitant]
     Active Substance: IPRATROPIUM BROMIDE
     Dates: start: 20220228, end: 20220304
  22. HYDROCORTISONE [Concomitant]
     Active Substance: HYDROCORTISONE
     Indication: Eczema
     Dates: start: 20220228, end: 20220321
  23. CODEINE [Concomitant]
     Active Substance: CODEINE
     Indication: Pain
     Route: 001
     Dates: start: 20220323
  24. BUPRENORPHINE [Concomitant]
     Active Substance: BUPRENORPHINE
     Indication: Pain
     Route: 062
     Dates: start: 20220323

REACTIONS (1)
  - Pneumonia [Fatal]

NARRATIVE: CASE EVENT DATE: 20211206
